FAERS Safety Report 4360689-2 (Version None)
Quarter: 2004Q2

REPORT INFORMATION
  Report Type: 
  Country: None (occurrence: None)
  Receive Date: 20040514
  Receipt Date: 20040427
  Transmission Date: 20050107
  Serious: Yes (Other)
  Sender: FDA-Public Use
  Company Number: 701811

PATIENT
  Age: 72 Year
  Sex: Female

DRUGS (1)
  1. AMEVIVE [Suspect]
     Indication: PSORIASIS
     Dosage: 15 MG QW; IM
     Route: 030
     Dates: start: 20040202, end: 20040326

REACTIONS (1)
  - RENAL NEOPLASM [None]
